FAERS Safety Report 20633913 (Version 2)
Quarter: 2022Q2

REPORT INFORMATION
  Report Type: Report from Study
  Country: CN (occurrence: CN)
  Receive Date: 20220324
  Receipt Date: 20220415
  Transmission Date: 20220721
  Serious: Yes (Life-Threatening, Hospitalization)
  Sender: FDA-Public Use
  Company Number: CN-ABBVIE-22P-035-4324477-00

PATIENT
  Age: 59 Year
  Sex: Female
  Weight: 67 kg

DRUGS (14)
  1. VENETOCLAX [Suspect]
     Active Substance: VENETOCLAX
     Indication: Myelodysplastic syndrome
     Dosage: DAYS 1-14 OF EACH 28 DAY CYCLE
     Route: 048
     Dates: start: 20220305
  2. AZACITIDINE [Suspect]
     Active Substance: AZACITIDINE
     Indication: Myelodysplastic syndrome
     Dosage: ON 7 DAYS WITHIN THE FIRST 9 CALENDAR DAYS OF EACH 28 DAY CYCLE
     Route: 058
     Dates: start: 20220305
  3. PHOSPHOCREATINE [Concomitant]
     Active Substance: PHOSPHOCREATINE
     Indication: Cardiomyopathy
     Route: 041
     Dates: start: 20220225, end: 20220225
  4. PHOSPHOCREATINE [Concomitant]
     Active Substance: PHOSPHOCREATINE
     Route: 041
     Dates: start: 20220225, end: 20220301
  5. PHOSPHOCREATINE [Concomitant]
     Active Substance: PHOSPHOCREATINE
     Route: 041
     Dates: start: 20220302, end: 20220303
  6. PHOSPHOCREATINE [Concomitant]
     Active Substance: PHOSPHOCREATINE
     Route: 041
     Dates: start: 20220304, end: 20220311
  7. AMINO ACIDS, SOURCE UNSPECIFIED [Concomitant]
     Active Substance: AMINO ACIDS, SOURCE UNSPECIFIED
     Indication: Nutritional supplementation
     Route: 041
     Dates: start: 20220225, end: 20220306
  8. POTASSIUM ASPARTATE [Concomitant]
     Active Substance: POTASSIUM ASPARTATE
     Indication: Nutritional supplementation
     Dosage: 0.4 BRANCH
     Route: 041
     Dates: start: 20220205, end: 20220306
  9. DIISOPROPYLAMMONIUM DICHLOROACETATE [Concomitant]
     Active Substance: DIISOPROPYLAMMONIUM DICHLOROACETATE
     Indication: Prophylaxis
     Route: 041
     Dates: start: 20220225, end: 20220311
  10. RIBOFLAVIN 5^-PHOSPHATE SODIUM ANHYDROUS [Concomitant]
     Active Substance: RIBOFLAVIN 5^-PHOSPHATE SODIUM ANHYDROUS
     Indication: Prophylaxis
     Route: 041
     Dates: start: 20220225, end: 20220309
  11. PALONOSETRON HYDROCHLORIDE [Concomitant]
     Active Substance: PALONOSETRON HYDROCHLORIDE
     Indication: Prophylaxis of nausea and vomiting
     Dates: start: 20220305, end: 20220305
  12. PALONOSETRON HYDROCHLORIDE [Concomitant]
     Active Substance: PALONOSETRON HYDROCHLORIDE
     Route: 040
     Dates: start: 20220307, end: 20220311
  13. GANCICLOVIR [Concomitant]
     Active Substance: GANCICLOVIR
     Indication: Antiviral prophylaxis
     Route: 047
     Dates: start: 20220308, end: 20220318
  14. ADENOSINE PHOSPHATE [Concomitant]
     Active Substance: ADENOSINE PHOSPHATE
     Indication: Antiviral prophylaxis
     Route: 041
     Dates: start: 20220308, end: 20220311

REACTIONS (1)
  - Platelet count decreased [Recovered/Resolved]

NARRATIVE: CASE EVENT DATE: 20220319
